FAERS Safety Report 7628958-8 (Version None)
Quarter: 2011Q3

REPORT INFORMATION
  Report Type: 
  Country: None (occurrence: None)
  Receive Date: 20110722
  Receipt Date: 20110711
  Transmission Date: 20111222
  Serious: Yes (Hospitalization, Other)
  Sender: FDA-Public Use
  Company Number: US-BAYER-2011-000596

PATIENT
  Age: 25 Year
  Sex: Female
  Weight: 86.168 kg

DRUGS (4)
  1. IBUPROFEN [Concomitant]
  2. NEXIUM [Concomitant]
  3. YAZ [Suspect]
     Indication: ACNE
  4. YASMIN [Suspect]
     Indication: ACNE

REACTIONS (3)
  - GALLBLADDER NON-FUNCTIONING [None]
  - INJURY [None]
  - PAIN [None]
